FAERS Safety Report 4953739-3 (Version None)
Quarter: 2006Q1

REPORT INFORMATION
  Report Type: 
  Country: None (occurrence: None)
  Receive Date: 20060323
  Receipt Date: 20060323
  Transmission Date: 20060701
  Serious: Yes (Other)
  Sender: FDA-Public Use
  Company Number: None

PATIENT
  Age: 42 Year
  Sex: Female
  Weight: 61.2356 kg

DRUGS (1)
  1. DEPO-PROVERA [Suspect]
     Indication: CONTRACEPTION
     Dosage: 1 INJECTION EVERY 3 MONTHS IV
     Route: 042
     Dates: start: 20030219, end: 20030519

REACTIONS (13)
  - AMENORRHOEA [None]
  - ANXIETY [None]
  - DEPRESSION [None]
  - FEELING ABNORMAL [None]
  - HEADACHE [None]
  - HORMONE LEVEL ABNORMAL [None]
  - MALAISE [None]
  - MENTAL DISORDER [None]
  - MUSCLE SPASMS [None]
  - OVARIAN FAILURE [None]
  - PAIN [None]
  - SUICIDAL IDEATION [None]
  - WEIGHT INCREASED [None]
